FAERS Safety Report 7396876-9 (Version None)
Quarter: 2011Q2

REPORT INFORMATION
  Report Type: 
  Country: None (occurrence: None)
  Receive Date: 20110406
  Receipt Date: 20101229
  Transmission Date: 20111010
  Serious: No
  Sender: FDA-Public Use
  Company Number: US-BAYER-2011-026942

PATIENT
  Sex: Female
  Weight: 77 kg

DRUGS (8)
  1. ALEVE (CAPLET) [Suspect]
     Indication: PRODUCT USED FOR UNKNOWN INDICATION
     Dosage: 2 DF, ONCE
     Route: 048
     Dates: start: 20101229
  2. COREG [Concomitant]
  3. ZOCOR [Concomitant]
  4. PRENATAL VITAMINS [VIT C,VIT H,MIN NOS,VIT PP,RETINOL,VIT E,VIT B NOS, [Concomitant]
  5. ZOLOFT [Concomitant]
  6. VITAMIN E [Concomitant]
  7. TRAZODONE HCL [Concomitant]
  8. OMEPRAZOLE [Concomitant]

REACTIONS (1)
  - HYPERHIDROSIS [None]
